FAERS Safety Report 4986066-9 (Version None)
Quarter: 2006Q2

REPORT INFORMATION
  Report Type: 
  Country: None (occurrence: None)
  Receive Date: 20060428
  Receipt Date: 20060202
  Transmission Date: 20061013
  Serious: Yes (Hospitalization)
  Sender: FDA-Public Use
  Company Number: PHHO2006JP02153

PATIENT
  Age: 64 Year
  Sex: Male

DRUGS (3)
  1. ZANTAC [Concomitant]
     Indication: GASTRIC ULCER
  2. LIPOVAS [Concomitant]
     Indication: HYPERLIPIDAEMIA
  3. DIOVAN [Suspect]
     Dosage: 80 MG, QD
     Route: 048
     Dates: start: 20030714

REACTIONS (2)
  - COLONIC POLYP [None]
  - SURGERY [None]
